FAERS Safety Report 9849883 (Version 1)
Quarter: 2014Q1

REPORT INFORMATION
  Report Type: Spontaneous
  Country: BR (occurrence: None)
  Receive Date: 20140124
  Receipt Date: 20140124
  Transmission Date: 20141002
  Serious: Yes (Hospitalization)
  Sender: FDA-Public Use
  Company Number: DSJ-2014-00640

PATIENT
  Sex: Female
  Weight: 75.5 kg

DRUGS (5)
  1. BENICAR ANLO (OLMESARTAN MEDOXOMIL, AMLODIPINE BESILATE) (TABLET) (OLMESARTAN MEDOXOMIL, AMLODIPINE) [Suspect]
     Indication: HYPERTENSION
     Dosage: 80/10 MG (1 IN 1 D, PER ORAL
     Dates: start: 2013
  2. TACROLIMUS (TACROLIMUS) (TACROLIMUS) [Concomitant]
  3. MYCOPHENOLATE (MYCOPHENOLATE MOFETIL) (MYCOPHENOLATE MOFETIL) [Concomitant]
  4. FERROUS SULPHATE (FERROUS SULFATE) (FERROUS SULFATE) [Concomitant]
  5. VITAMIN B1/VITAMIN B2/VITAMINB3/VITAMIN B6/VITAMIN B5 [Concomitant]

REACTIONS (10)
  - Nasopharyngitis [None]
  - Oedema [None]
  - Oedema peripheral [None]
  - Thrombosis [None]
  - Tendonitis [None]
  - Pain [None]
  - Chest pain [None]
  - Nasopharyngitis [None]
  - Pyrexia [None]
  - Influenza [None]
